FAERS Safety Report 9676529 (Version 3)
Quarter: 2014Q1

REPORT INFORMATION
  Report Type: Report from Study
  Country: VE (occurrence: VE)
  Receive Date: 20131107
  Receipt Date: 20140210
  Transmission Date: 20141002
  Serious: Yes (Death)
  Sender: FDA-Public Use
  Company Number: VE-ABBVIE-13P-178-1167424-00

PATIENT
  Sex: Male

DRUGS (2)
  1. ZEMPLAR [Suspect]
     Indication: RENAL FAILURE CHRONIC
     Route: 042
     Dates: end: 201304
  2. ZEMPLAR [Suspect]
     Indication: RENAL FAILURE

REACTIONS (2)
  - Sepsis [Fatal]
  - Respiratory tract infection [Fatal]
